FAERS Safety Report 17597324 (Version 1)
Quarter: 2020Q1

REPORT INFORMATION
  Report Type: Spontaneous
  Country: FR (occurrence: FR)
  Receive Date: 20200330
  Receipt Date: 20200330
  Transmission Date: 20200409
  Serious: Yes (Hospitalization)
  Sender: FDA-Public Use
  Company Number: FR-TEVA-2020-FR-1212130

PATIENT
  Age: 45 Year
  Sex: Male

DRUGS (2)
  1. AMOXICILLINE BASE [Suspect]
     Active Substance: AMOXICILLIN
     Dosage: UNSPECIFIED
     Route: 048
     Dates: start: 20110215, end: 20110215
  2. IBUPROFENE [Suspect]
     Active Substance: IBUPROFEN
     Dosage: UNSPECIFIED
     Route: 048
     Dates: start: 20110215, end: 20110215

REACTIONS (1)
  - Anaphylactic shock [Recovered/Resolved]

NARRATIVE: CASE EVENT DATE: 20110215
